FAERS Safety Report 20648220 (Version 1)
Quarter: 2022Q1

REPORT INFORMATION
  Report Type: Spontaneous
  Country: US (occurrence: US)
  Receive Date: 20220329
  Receipt Date: 20220329
  Transmission Date: 20220423
  Serious: No
  Sender: FDA-Public Use
  Company Number: US-GLAXOSMITHKLINE-US2022AMR053776

PATIENT
  Age: 10 Year
  Sex: Female

DRUGS (1)
  1. MEPOLIZUMAB [Suspect]
     Active Substance: MEPOLIZUMAB
     Indication: Asthma
     Dosage: 40 MG, MONTHLY
     Route: 058

REACTIONS (3)
  - Bronchospasm [Unknown]
  - Dyspnoea [Unknown]
  - Treatment noncompliance [Unknown]
